FAERS Safety Report 6268872-6 (Version None)
Quarter: 2009Q3

REPORT INFORMATION
  Report Type: 
  Country: None (occurrence: None)
  Receive Date: 20090715
  Receipt Date: 20090706
  Transmission Date: 20100115
  Serious: Yes (Other)
  Sender: FDA-Public Use
  Company Number: PHHY2009CA28937

PATIENT

DRUGS (1)
  1. DICLOFENAC [Suspect]
     Route: 047

REACTIONS (2)
  - DRUG INEFFECTIVE [None]
  - PAIN [None]
